FAERS Safety Report 6129708-7 (Version None)
Quarter: 2009Q1

REPORT INFORMATION
  Report Type: 
  Country: None (occurrence: None)
  Receive Date: 20090324
  Receipt Date: 20090319
  Transmission Date: 20090719
  Serious: Yes (Hospitalization)
  Sender: FDA-Public Use
  Company Number: IT-AVENTIS-200911900GDDC

PATIENT
  Age: 57 Year
  Sex: Female

DRUGS (8)
  1. ARAVA [Suspect]
     Indication: RHEUMATOID ARTHRITIS
     Route: 048
     Dates: start: 20090129, end: 20090204
  2. ARAVA [Suspect]
     Dosage: DOSE: 5 MG EVEN DAYS/10MG ODD DAYS
     Route: 048
     Dates: start: 20090205, end: 20090211
  3. ARAVA [Suspect]
     Route: 048
     Dates: start: 20090212
  4. CIPRALEX [Suspect]
     Indication: DEPRESSION
     Route: 048
     Dates: start: 20090129, end: 20090204
  5. CIPRALEX [Suspect]
     Route: 048
     Dates: start: 20090205
  6. LOBIVON [Concomitant]
     Route: 048
  7. MEDROL [Concomitant]
     Indication: RHEUMATOID ARTHRITIS
     Route: 048
  8. OMEPRAZOLE [Concomitant]
     Indication: STEROID THERAPY
     Route: 048

REACTIONS (1)
  - ATRIAL FIBRILLATION [None]
